FAERS Safety Report 13213825 (Version 2)
Quarter: 2017Q1

REPORT INFORMATION
  Report Type: Spontaneous
  Country: US (occurrence: US)
  Receive Date: 20170210
  Receipt Date: 20170316
  Transmission Date: 20170428
  Serious: No
  Sender: FDA-Public Use
  Company Number: US-BAYER-2017-027347

PATIENT
  Age: 63 Year
  Sex: Female

DRUGS (1)
  1. CLIMARA [Suspect]
     Active Substance: ESTRADIOL
     Dosage: 0.75 UNK, UNK
     Route: 062

REACTIONS (4)
  - Application site pruritus [Recovered/Resolved]
  - Product quality issue [None]
  - Application site vesicles [Recovered/Resolved]
  - Application site irritation [Recovered/Resolved]
